FAERS Safety Report 8981983 (Version 1)
Quarter: 2012Q4

REPORT INFORMATION
  Report Type: 
  Country: US (occurrence: US)
  Receive Date: 20121212
  Receipt Date: 20121212
  Transmission Date: 20130627
  Serious: Yes (Other)
  Sender: FDA-Public Use
  Company Number: US-ASTELLAS-1121664

PATIENT
  Sex: Female

DRUGS (1)
  1. TARCEVA [Suspect]
     Indication: PRODUCT USED FOR UNKNOWN INDICATION
     Route: 065
     Dates: start: 2008

REACTIONS (11)
  - Eye haemorrhage [Unknown]
  - Diarrhoea [Unknown]
  - Stomatitis [Unknown]
  - Tongue ulceration [Unknown]
  - Fatigue [Unknown]
  - Chills [Unknown]
  - Pyrexia [Unknown]
  - Hypoaesthesia [Unknown]
  - Arthralgia [Unknown]
  - Confusional state [Unknown]
  - Nasal ulcer [Unknown]
